FAERS Safety Report 5789364-4 (Version None)
Quarter: 2008Q2

REPORT INFORMATION
  Report Type: 
  Country: None (occurrence: None)
  Receive Date: 20080626
  Receipt Date: 20080123
  Transmission Date: 20081010
  Serious: No
  Sender: FDA-Public Use
  Company Number: US-ASTRAZENECA-2008UW01706

PATIENT
  Age: 4 Year
  Sex: Female
  Weight: 18.1 kg

DRUGS (2)
  1. PULMICORT RESPULES [Suspect]
     Indication: ASTHMA
     Dosage: 1 AMPULE TWICE DAILY
     Route: 055
  2. NASONEX [Concomitant]

REACTIONS (3)
  - EYE SWELLING [None]
  - LIP SWELLING [None]
  - SWELLING FACE [None]
